FAERS Safety Report 9754685 (Version 1)
Quarter: 2013Q4

REPORT INFORMATION
  Report Type: Spontaneous
  Country: US (occurrence: US)
  Receive Date: 20131213
  Receipt Date: 20131213
  Transmission Date: 20140711
  Serious: Yes (Other)
  Sender: FDA-Public Use
  Company Number: US-PFIZER INC-2013356207

PATIENT
  Sex: Female
  Weight: 77.1 kg

DRUGS (2)
  1. CELEBREX [Suspect]
     Indication: ARTHRITIS
     Dosage: 200 MG, DAILY
  2. BENADRYL [Concomitant]
     Indication: SINUSITIS
     Dosage: UNK, AS NEEDED

REACTIONS (2)
  - Macular degeneration [Unknown]
  - Cataract [Unknown]
